FAERS Safety Report 6651049-X (Version None)
Quarter: 2010Q1

REPORT INFORMATION
  Report Type: 
  Country: None (occurrence: None)
  Receive Date: 20100325
  Receipt Date: 20100316
  Transmission Date: 20100710
  Serious: Yes (Disabling, Other)
  Sender: FDA-Public Use
  Company Number: AU-WYE-G05752810

PATIENT
  Age: 30 Year
  Sex: Male

DRUGS (1)
  1. PRISTIQ [Suspect]
     Dosage: DOSE WENT FROM 50MG TO 100MG AND NOW ADVISED TO REDUCE DOSE
     Dates: start: 20080101

REACTIONS (3)
  - FATIGUE [None]
  - IMPAIRED WORK ABILITY [None]
  - SOMNOLENCE [None]
